FAERS Safety Report 23357414 (Version 1)
Quarter: 2024Q1

REPORT INFORMATION
  Report Type: Spontaneous
  Country: JP (occurrence: JP)
  Receive Date: 20240102
  Receipt Date: 20240102
  Transmission Date: 20240410
  Serious: Yes (Hospitalization, Other)
  Sender: FDA-Public Use
  Company Number: JP-TEVA-VS-3137278

PATIENT
  Age: 8 Decade

DRUGS (2)
  1. AZILECT [Suspect]
     Active Substance: RASAGILINE MESYLATE
     Indication: Parkinson^s disease
     Route: 048
  2. AMANTADINE HYDROCHLORIDE [Concomitant]
     Active Substance: AMANTADINE HYDROCHLORIDE
     Dosage: TIME INTERVAL: 0.33333333 DAYS

REACTIONS (8)
  - Muscular weakness [Unknown]
  - Dissociative identity disorder [Recovered/Resolved]
  - Dysstasia [Unknown]
  - Diplegia [Unknown]
  - Delirium [Unknown]
  - Bradykinesia [Unknown]
  - Pain [Unknown]
  - Disease progression [Unknown]
